FAERS Safety Report 12472032 (Version 1)
Quarter: 2016Q2

REPORT INFORMATION
  Report Type: Spontaneous
  Country: US (occurrence: None)
  Receive Date: 20160615
  Receipt Date: 20160615
  Transmission Date: 20160815
  Serious: Yes (Hospitalization)
  Sender: FDA-Public Use
  Company Number: None

PATIENT
  Age: 64 Year
  Sex: Female
  Weight: 103.2 kg

DRUGS (9)
  1. WARFARIN [Suspect]
     Active Substance: WARFARIN
     Indication: THROMBOSIS PROPHYLAXIS
     Dosage: 7.5MG TWTHFSS PO CHRONIC
     Route: 048
  2. FE [Concomitant]
     Active Substance: IRON
  3. SYNTHROID [Concomitant]
     Active Substance: LEVOTHYROXINE SODIUM
  4. LISINOPRIL. [Concomitant]
     Active Substance: LISINOPRIL
  5. ULTRAM ER [Concomitant]
     Active Substance: TRAMADOL HYDROCHLORIDE
  6. PERCOCET [Concomitant]
     Active Substance: ACETAMINOPHEN\OXYCODONE HYDROCHLORIDE
  7. WARFARIN [Suspect]
     Active Substance: WARFARIN
     Indication: THROMBOSIS PROPHYLAXIS
     Dosage: 11.25MG MONDAY PO CHRONIC
     Route: 048
  8. MVI [Concomitant]
     Active Substance: VITAMINS
  9. LEXAPRO [Concomitant]
     Active Substance: ESCITALOPRAM OXALATE

REACTIONS (3)
  - Haemorrhagic anaemia [None]
  - Gastritis haemorrhagic [None]
  - International normalised ratio increased [None]

NARRATIVE: CASE EVENT DATE: 20151219
